FAERS Safety Report 8698192 (Version 2)
Quarter: 2012Q4

REPORT INFORMATION
  Report Type: 
  Country: FR (occurrence: FR)
  Receive Date: 20120802
  Receipt Date: 20121004
  Transmission Date: 20130627
  Serious: Yes (Hospitalization)
  Sender: FDA-Public Use
  Company Number: FR-009507513-1207FRA008564

PATIENT
  Age: 69 Year
  Sex: Male
  Weight: 86 kg

DRUGS (7)
  1. VICTRELIS [Suspect]
     Dosage: 2400 mg, qd
     Dates: start: 20120212
  2. PEGASYS [Suspect]
     Indication: HEPATITIS C
     Dosage: 135 Microgram, qw
     Route: 058
     Dates: start: 20120115
  3. COPEGUS [Suspect]
     Indication: HEPATITIS C
     Dosage: 1200 mg, qd
     Route: 048
     Dates: start: 20120115
  4. NEORECORMON [Concomitant]
     Indication: ANAEMIA
     Dosage: 30000 IU, QW
     Route: 058
     Dates: start: 20120621
  5. KARDEGIC [Concomitant]
     Indication: HYPERTENSION
     Dosage: 160 mg, qd
     Route: 048
  6. KARDEGIC [Concomitant]
     Indication: CARDIOVASCULAR EVENT PROPHYLAXIS
  7. SEVIKAR [Concomitant]
     Indication: HYPERTENSION
     Dosage: 1 DF, qd
     Route: 048

REACTIONS (1)
  - Angina pectoris [Recovered/Resolved]
